FAERS Safety Report 6388277-7 (Version None)
Quarter: 2009Q3

REPORT INFORMATION
  Report Type: 
  Country: None (occurrence: None)
  Receive Date: 20090930
  Receipt Date: 20090915
  Transmission Date: 20100115
  Serious: Yes (Hospitalization)
  Sender: FDA-Public Use
  Company Number: 2009002819

PATIENT
  Sex: Female

DRUGS (8)
  1. ERLOTINIB HYDROCHLORIDE [Suspect]
     Indication: COLORECTAL CANCER METASTATIC
     Dosage: ORAL
     Route: 048
  2. BEVACIZUMAB (INJECTION FOR INFUSION) [Suspect]
     Indication: COLORECTAL CANCER METASTATIC
     Dosage: INTRAVENOUS
     Route: 042
  3. DALTEPARIN SODIUM [Suspect]
     Indication: COLORECTAL CANCER METASTATIC
  4. DOLOPROCT (DOLOPROCT ZAEPFCHEN) [Suspect]
     Indication: COLORECTAL CANCER METASTATIC
  5. PREDNISOLONE [Suspect]
     Indication: COLORECTAL CANCER METASTATIC
  6. MORPHINE [Suspect]
     Indication: COLORECTAL CANCER METASTATIC
  7. ALPRAZOLAM [Suspect]
     Indication: COLORECTAL CANCER METASTATIC
  8. ZOPICLONE (ZOPICLONE) [Suspect]
     Indication: COLORECTAL CANCER METASTATIC

REACTIONS (2)
  - COLONIC STENOSIS [None]
  - PAIN [None]
